FAERS Safety Report 5109292-7 (Version None)
Quarter: 2006Q3

REPORT INFORMATION
  Report Type: 
  Country: None (occurrence: None)
  Receive Date: 20060920
  Receipt Date: 20060510
  Transmission Date: 20061208
  Serious: Yes (Other)
  Sender: FDA-Public Use
  Company Number: US-GLAXOSMITHKLINE-A0605047A

PATIENT
  Age: 77 Year
  Sex: Female

DRUGS (8)
  1. ZOFRAN [Suspect]
     Route: 042
     Dates: start: 20060424, end: 20060424
  2. TOPROL-XL [Concomitant]
     Route: 048
  3. MODURETIC 5-50 [Concomitant]
     Route: 048
  4. PLAVIX [Concomitant]
     Route: 048
  5. CALCIUM GLUCONATE [Concomitant]
     Route: 048
  6. LEVOXYL [Concomitant]
     Route: 048
  7. ASPIRIN [Concomitant]
     Route: 048
  8. DIOVAN [Concomitant]
     Route: 048

REACTIONS (7)
  - BALANCE DISORDER [None]
  - DEAFNESS UNILATERAL [None]
  - DIZZINESS [None]
  - DYSSTASIA [None]
  - GAIT DISTURBANCE [None]
  - TINNITUS [None]
  - VERTIGO [None]
